FAERS Safety Report 6877563-X (Version None)
Quarter: 2010Q3

REPORT INFORMATION
  Report Type: 
  Country: None (occurrence: None)
  Receive Date: 20100727
  Receipt Date: 20100225
  Transmission Date: 20110219
  Serious: No
  Sender: FDA-Public Use
  Company Number: US-ABBOTT-10P-163-0629821-00

PATIENT
  Sex: Female
  Weight: 56.75 kg

DRUGS (1)
  1. SYNTHROID [Suspect]
     Indication: THYROIDECTOMY
     Route: 048
     Dates: start: 20091217

REACTIONS (5)
  - DIARRHOEA [None]
  - PARAESTHESIA [None]
  - RALES [None]
  - SKIN BURNING SENSATION [None]
  - WHEEZING [None]
